FAERS Safety Report 13086244 (Version 2)
Quarter: 2017Q1

REPORT INFORMATION
  Report Type: Report from Study
  Country: BR (occurrence: BR)
  Receive Date: 20170104
  Receipt Date: 20170323
  Transmission Date: 20170428
  Serious: Yes (Hospitalization, Disabling)
  Sender: FDA-Public Use
  Company Number: BR-ALEXION-A201609390

PATIENT
  Age: 8 Year
  Sex: Female
  Weight: 17.5 kg

DRUGS (1)
  1. STRENSIQ [Suspect]
     Active Substance: ASFOTASE ALFA
     Indication: HYPOPHOSPHATASIA
     Dosage: 35 MG, TIW
     Route: 058
     Dates: start: 20161026

REACTIONS (4)
  - Upper limb fracture [Recovering/Resolving]
  - Blood alkaline phosphatase abnormal [Unknown]
  - Fall [Unknown]
  - Injection site bruising [Unknown]

NARRATIVE: CASE EVENT DATE: 201611
